FAERS Safety Report 4847968-7 (Version None)
Quarter: 2005Q4

REPORT INFORMATION
  Report Type: 
  Country: None (occurrence: None)
  Receive Date: 20051208
  Receipt Date: 20051129
  Transmission Date: 20060501
  Serious: Yes (Hospitalization)
  Sender: FDA-Public Use
  Company Number: PHNU2005PL03957

PATIENT
  Age: 56 Year
  Sex: Female

DRUGS (3)
  1. DIPROPHOS [Concomitant]
     Indication: INFLAMMATION
     Dates: start: 20051104
  2. METHYLPREDNISOLONE [Concomitant]
     Indication: RHEUMATOID ARTHRITIS
     Dosage: 4MG/DAY
  3. SANDIMMUNE [Suspect]
     Indication: RHEUMATOID ARTHRITIS
     Dosage: 150MG/DAY
     Route: 048
     Dates: start: 20051104, end: 20051107

REACTIONS (5)
  - BLOOD POTASSIUM INCREASED [None]
  - BLOOD UREA INCREASED [None]
  - CARDIOVASCULAR DISORDER [None]
  - HYPERTENSION [None]
  - PULMONARY OEDEMA [None]
